FAERS Safety Report 17592099 (Version 1)
Quarter: 2020Q1

REPORT INFORMATION
  Report Type: Spontaneous
  Country: US (occurrence: US)
  Receive Date: 20200327
  Receipt Date: 20200327
  Transmission Date: 20200409
  Serious: No
  Sender: FDA-Public Use
  Company Number: US-ASTRAZENECA-2020SE31199

PATIENT
  Sex: Female
  Weight: 48.3 kg

DRUGS (2)
  1. IBRANCE [Suspect]
     Active Substance: PALBOCICLIB
     Indication: BREAST CANCER STAGE IV
     Route: 048
     Dates: start: 201901
  2. FASLODEX [Suspect]
     Active Substance: FULVESTRANT
     Indication: BREAST CANCER STAGE IV
     Dosage: 500 MG SHOT - INJECTION MONTHLY THE DAY SHE STARTS HER IBRANCE. SHE GETS 2 SHOTS OF 250 MG EACH.
     Route: 030
     Dates: start: 201901

REACTIONS (2)
  - Rhinorrhoea [Unknown]
  - Arthralgia [Unknown]
